FAERS Safety Report 7276446-3 (Version None)
Quarter: 2011Q1

REPORT INFORMATION
  Report Type: 
  Country: None (occurrence: None)
  Receive Date: 20110204
  Receipt Date: 20110124
  Transmission Date: 20110831
  Serious: Yes (Other)
  Sender: FDA-Public Use
  Company Number: CH-ELI_LILLY_AND_COMPANY-CH201101000090

PATIENT
  Sex: Female

DRUGS (2)
  1. NEOCAPIL [Concomitant]
     Indication: ANDROGENETIC ALOPECIA
     Dosage: 5 %, UNK
     Route: 061
     Dates: start: 20101008, end: 20101223
  2. RALOXIFENE HYDROCHLORIDE [Suspect]
     Indication: OSTEOPOROSIS
     Dosage: 60 MG, DAILY (1/D)
     Route: 048
     Dates: start: 20101008

REACTIONS (1)
  - HYPERTRICHOSIS [None]
